FAERS Safety Report 4796300-6 (Version None)
Quarter: 2005Q4

REPORT INFORMATION
  Report Type: 
  Country: None (occurrence: None)
  Receive Date: 20051007
  Receipt Date: 20050923
  Transmission Date: 20060501
  Serious: Yes (Hospitalization)
  Sender: FDA-Public Use
  Company Number: 2005S1009520

PATIENT
  Age: 68 Year
  Sex: Female

DRUGS (2)
  1. METHOTREXATE [Suspect]
     Indication: PSORIATIC ARTHROPATHY
     Dosage: ORAL
     Route: 048
     Dates: start: 20050721, end: 20050729
  2. METHOTREXATE [Suspect]
     Indication: PSORIATIC ARTHROPATHY
     Dosage: SEE IMAGE
     Route: 048
     Dates: start: 20050804

REACTIONS (5)
  - ARTHRITIS [None]
  - DRUG INEFFECTIVE [None]
  - INFECTION [None]
  - JOINT EFFUSION [None]
  - PYREXIA [None]
